FAERS Safety Report 14587118 (Version 1)
Quarter: 2018Q1

REPORT INFORMATION
  Report Type: Spontaneous
  Country: IT (occurrence: IT)
  Receive Date: 20180301
  Receipt Date: 20180301
  Transmission Date: 20180509
  Serious: Yes (Other)
  Sender: FDA-Public Use
  Company Number: IT-MYLANLABS-2018M1012856

PATIENT
  Age: 42 Year
  Sex: Female
  Weight: 165 kg

DRUGS (1)
  1. REMIFENTANIL MYLAN 2 MG, LYOPHILISAT [Suspect]
     Active Substance: REMIFENTANIL
     Indication: GENERAL ANAESTHESIA
     Dosage: 5 G, TOTAL
     Route: 042
     Dates: start: 20180117, end: 20180117

REACTIONS (2)
  - Drug effect decreased [Recovered/Resolved]
  - Bradycardia [Recovered/Resolved]

NARRATIVE: CASE EVENT DATE: 20180117
